FAERS Safety Report 24126822 (Version 1)
Quarter: 2024Q3

REPORT INFORMATION
  Report Type: Spontaneous
  Country: FR (occurrence: FR)
  Receive Date: 20240723
  Receipt Date: 20240723
  Transmission Date: 20241017
  Serious: Yes (Life-Threatening, Hospitalization)
  Sender: RANBAXY
  Company Number: FR-SUN PHARMACEUTICAL INDUSTRIES LTD-2024RR-457932

PATIENT
  Age: 28 Year
  Sex: Female

DRUGS (3)
  1. MORPHINE [Suspect]
     Active Substance: MORPHINE
     Indication: Spinal anaesthesia
     Dosage: IN SPINAL ANESTHESIA
     Route: 024
     Dates: start: 20240410, end: 20240410
  2. SUFENTANIL [Suspect]
     Active Substance: SUFENTANIL
     Indication: Spinal anaesthesia
     Dosage: IN SPINAL ANESTHESIA
     Route: 024
     Dates: start: 20240410, end: 20240410
  3. BUPIVACAINE [Suspect]
     Active Substance: BUPIVACAINE
     Indication: Spinal anaesthesia
     Dosage: IN SPINAL ANESTHESIA
     Route: 024
     Dates: start: 20240410, end: 20240410

REACTIONS (1)
  - Shock [Recovering/Resolving]

NARRATIVE: CASE EVENT DATE: 20240410
